FAERS Safety Report 6199406-2 (Version None)
Quarter: 2009Q2

REPORT INFORMATION
  Report Type: 
  Country: None (occurrence: None)
  Receive Date: 20090520
  Receipt Date: 20090520
  Transmission Date: 20091009
  Serious: Yes (Hospitalization)
  Sender: FDA-Public Use
  Company Number: None

PATIENT
  Age: 66 Year
  Sex: Male
  Weight: 91.3998 kg

DRUGS (10)
  1. IXABEPILONE [Suspect]
     Indication: PANCREATIC CARCINOMA
     Dosage: 33 MG DAY 1, 8, 15 IV DRIP
     Route: 041
     Dates: start: 20090415, end: 20090513
  2. SUNITINIB [Suspect]
     Dosage: 37.5 MG DAILY PO
     Route: 048
     Dates: start: 20090415, end: 20090513
  3. ASCORBIC ACID [Concomitant]
  4. MULTI-VITAMINS [Concomitant]
  5. FRAGMIN [Concomitant]
  6. NEXIUM [Concomitant]
  7. MOTRIN [Concomitant]
  8. COMPAZINE [Concomitant]
  9. CRAMBERRY [Concomitant]
  10. MAGNESIUM SULFATE [Concomitant]

REACTIONS (1)
  - HAEMOGLOBIN DECREASED [None]
